FAERS Safety Report 15693097 (Version 2)
Quarter: 2021Q2

REPORT INFORMATION
  Report Type: Spontaneous
  Country: US (occurrence: US)
  Receive Date: 20181206
  Receipt Date: 20210427
  Transmission Date: 20210716
  Serious: No
  Sender: FDA-Public Use
  Company Number: US-TEVA-2018-US-982352

PATIENT

DRUGS (1)
  1. DOCETAXEL ACCORD HEALTHCARE [Suspect]
     Active Substance: DOCETAXEL
     Indication: BREAST CANCER FEMALE
     Dosage: NO OF CYCLES: 04, EVERY THREE WEEKS
     Dates: start: 20160412, end: 20160614

REACTIONS (3)
  - Alopecia areata [Unknown]
  - Madarosis [Unknown]
  - Alopecia [Unknown]
